APPROVED DRUG PRODUCT: OLOPATADINE HYDROCHLORIDE
Active Ingredient: OLOPATADINE HYDROCHLORIDE
Strength: EQ 0.1% BASE
Dosage Form/Route: SOLUTION/DROPS;OPHTHALMIC
Application: A206046 | Product #001
Applicant: BAUSCH AND LOMB INC
Approved: Jul 26, 2017 | RLD: No | RS: No | Type: OTC